FAERS Safety Report 6453905-4 (Version None)
Quarter: 2009Q4

REPORT INFORMATION
  Report Type: 
  Country: None (occurrence: None)
  Receive Date: 20091116
  Receipt Date: 20091124
  Transmission Date: 20100525
  Serious: Yes (Other)
  Sender: FDA-Public Use
  Company Number: 2009AP004484

PATIENT
  Sex: 0

DRUGS (2)
  1. LITHIUM CARBONATE [Suspect]
  2. GABAPENTIN [Suspect]

REACTIONS (2)
  - BLOOD CREATININE INCREASED [None]
  - DIABETES INSIPIDUS [None]
